FAERS Safety Report 12091627 (Version 2)
Quarter: 2016Q1

REPORT INFORMATION
  Report Type: Spontaneous
  Country: US (occurrence: US)
  Receive Date: 20160218
  Receipt Date: 20160331
  Transmission Date: 20160526
  Serious: No
  Sender: FDA-Public Use
  Company Number: US-BIOMARINAP-US-2016-108814

PATIENT
  Sex: Male
  Weight: 16 kg

DRUGS (1)
  1. NAGLAZYME [Suspect]
     Active Substance: GALSULFASE
     Indication: MUCOPOLYSACCHARIDOSIS VI
     Dosage: 20 MG, QW
     Route: 042
     Dates: start: 20070423

REACTIONS (3)
  - Ear pain [Unknown]
  - Headache [Unknown]
  - Middle ear effusion [Unknown]
